FAERS Safety Report 21391520 (Version 2)
Quarter: 2022Q4

REPORT INFORMATION
  Report Type: Spontaneous
  Country: CA (occurrence: CA)
  Receive Date: 20220929
  Receipt Date: 20221104
  Transmission Date: 20230113
  Serious: Yes (Other)
  Sender: FDA-Public Use
  Company Number: CA-PFIZER INC-202201191431

PATIENT
  Age: 41 Year
  Sex: Female

DRUGS (7)
  1. RITUXIMAB [Suspect]
     Active Substance: RITUXIMAB
     Indication: Antisynthetase syndrome
     Dosage: 1000 MG
     Route: 042
     Dates: start: 20220515
  2. RITUXIMAB [Suspect]
     Active Substance: RITUXIMAB
     Indication: Myocarditis
     Dosage: 1000 MG
     Route: 042
     Dates: start: 20220530
  3. RITUXIMAB [Suspect]
     Active Substance: RITUXIMAB
     Dosage: 500MG IV EVERY 6 MONTHS MAINTENANCE DOSE, NOT STARTED
     Route: 042
  4. SOLU-MEDROL [Suspect]
     Active Substance: METHYLPREDNISOLONE SODIUM SUCCINATE
     Dosage: 60 MG EVERY 8 H
     Route: 042
  5. MYCOPHENOLIC ACID [Concomitant]
     Active Substance: MYCOPHENOLIC ACID
     Dosage: 1000 MG, 2X/DAY
     Route: 065
  6. PREDNISONE [Concomitant]
     Active Substance: PREDNISONE
     Indication: Myocarditis
     Dosage: 50 MG, TAPER
     Dates: start: 202204, end: 202208
  7. PREDNISONE [Concomitant]
     Active Substance: PREDNISONE
     Indication: Myositis

REACTIONS (3)
  - Interstitial lung disease [Unknown]
  - Dyspnoea [Unknown]
  - Cough [Unknown]

NARRATIVE: CASE EVENT DATE: 20220101
